FAERS Safety Report 10138197 (Version 1)
Quarter: 2014Q2

REPORT INFORMATION
  Report Type: Spontaneous
  Country: US (occurrence: US)
  Receive Date: 20140429
  Receipt Date: 20140429
  Transmission Date: 20141212
  Serious: No
  Sender: FDA-Public Use
  Company Number: US-PFIZER INC-2014113776

PATIENT
  Sex: 0

DRUGS (1)
  1. ADVIL COLD AND SINUS [Suspect]
     Indication: PAIN
     Dosage: UNK

REACTIONS (1)
  - Somnolence [Unknown]
